FAERS Safety Report 11709660 (Version 2)
Quarter: 2015Q4

REPORT INFORMATION
  Report Type: Spontaneous
  Country: US (occurrence: US)
  Receive Date: 20151104
  Receipt Date: 20151110
  Transmission Date: 20160304
  Serious: No
  Sender: FDA-Public Use
  Company Number: US-ELI_LILLY_AND_COMPANY-US201108002461

PATIENT
  Age: 79 Year
  Sex: Female

DRUGS (6)
  1. FORTEO [Suspect]
     Active Substance: TERIPARATIDE
     Dosage: 20 UG, QD
  2. FORTEO [Suspect]
     Active Substance: TERIPARATIDE
     Dosage: 20 UG, QD
  3. FORTEO [Suspect]
     Active Substance: TERIPARATIDE
     Indication: OSTEOPOROSIS
     Dosage: 20 UG, QD
     Dates: start: 201102
  4. FORTEO [Suspect]
     Active Substance: TERIPARATIDE
     Dosage: 20 UG, QD
  5. ZOLOFT [Concomitant]
     Active Substance: SERTRALINE HYDROCHLORIDE
  6. VITAMINS [Concomitant]
     Active Substance: VITAMINS

REACTIONS (9)
  - Limb discomfort [Unknown]
  - Tooth extraction [Unknown]
  - Nervous system disorder [Unknown]
  - Feeling abnormal [Unknown]
  - Wrist fracture [Not Recovered/Not Resolved]
  - Bone disorder [Unknown]
  - Fall [Unknown]
  - Dental care [Unknown]
  - Oral pain [Unknown]

NARRATIVE: CASE EVENT DATE: 20110411
